FAERS Safety Report 10326449 (Version 2)
Quarter: 2015Q1

REPORT INFORMATION
  Report Type: Other
  Country: None (occurrence: US)
  Receive Date: 20140720
  Receipt Date: 20150323
  Transmission Date: 20150720
  Serious: Yes (Hospitalization, Other)
  Sender: FDA-Public Use
  Company Number: US-GSKPPD-2014GSK030982

PATIENT
  Age: 60 Year
  Sex: Female

DRUGS (7)
  1. LASIX [Concomitant]
     Active Substance: FUROSEMIDE
     Dates: end: 200810
  2. LISINOPRIL. [Concomitant]
     Active Substance: LISINOPRIL
  3. NIFEDIPINE XR [Concomitant]
  4. ALDACTONE [Concomitant]
     Active Substance: SPIRONOLACTONE
  5. LABETALOL [Concomitant]
     Active Substance: LABETALOL\LABETALOL HYDROCHLORIDE
  6. ASPIRIN. [Concomitant]
     Active Substance: ASPIRIN
  7. AVANDIA [Suspect]
     Active Substance: ROSIGLITAZONE MALEATE
     Indication: DIABETES MELLITUS
     Dosage: AVANDIA WAS NOT LISTED AMONG THE PATIENTS RECORDS REVIEWED.
     Route: 048

REACTIONS (1)
  - Cardiac failure congestive [Recovered/Resolved]

NARRATIVE: CASE EVENT DATE: 20081014
